FAERS Safety Report 14759175 (Version 2)
Quarter: 2018Q2

REPORT INFORMATION
  Report Type: Spontaneous
  Country: US (occurrence: US)
  Receive Date: 20180413
  Receipt Date: 20180504
  Transmission Date: 20180711
  Serious: Yes (Hospitalization)
  Sender: FDA-Public Use
  Company Number: US-SAOL THERAPEUTICS-2018SAO00442

PATIENT
  Sex: Male
  Weight: 52.61 kg

DRUGS (10)
  1. LIORESAL [Suspect]
     Active Substance: BACLOFEN
     Indication: MUSCLE SPASTICITY
  2. COLACE [Concomitant]
     Active Substance: DOCUSATE SODIUM
  3. ROBINUL [Concomitant]
     Active Substance: GLYCOPYRROLATE
  4. KEPPRA [Concomitant]
     Active Substance: LEVETIRACETAM
  5. ALBUTEROL. [Concomitant]
     Active Substance: ALBUTEROL
  6. FIBERSOURCE HN [Concomitant]
     Route: 048
  7. LIORESAL [Suspect]
     Active Substance: BACLOFEN
     Indication: MENINGOENCEPHALITIS HERPETIC
     Route: 037
  8. VALIUM [Concomitant]
     Active Substance: DIAZEPAM
  9. KLONOPIN [Concomitant]
     Active Substance: CLONAZEPAM
  10. TEGRETOL [Concomitant]
     Active Substance: CARBAMAZEPINE

REACTIONS (1)
  - Staphylococcal infection [Recovered/Resolved]
